FAERS Safety Report 6444476-7 (Version None)
Quarter: 2009Q4

REPORT INFORMATION
  Report Type: 
  Country: None (occurrence: None)
  Receive Date: 20091118
  Receipt Date: 20091109
  Transmission Date: 20100525
  Serious: Yes (Death, Hospitalization)
  Sender: FDA-Public Use
  Company Number: NL-NOVOPROD-292616

PATIENT
  Age: 86 Year
  Sex: Female

DRUGS (2)
  1. ACTRAPID [Suspect]
     Indication: DRUG USE FOR UNKNOWN INDICATION
     Route: 058
     Dates: start: 20090927
  2. INOTROPIN [Concomitant]

REACTIONS (2)
  - DRUG INEFFECTIVE [None]
  - MYOCARDIAL INFARCTION [None]
